FAERS Safety Report 11145508 (Version 3)
Quarter: 2015Q2

REPORT INFORMATION
  Report Type: Spontaneous
  Country: IT (occurrence: IT)
  Receive Date: 20150528
  Receipt Date: 20150602
  Transmission Date: 20150821
  Serious: Yes (Life-Threatening)
  Sender: FDA-Public Use
  Company Number: IT-SA-2015SA071372

PATIENT
  Age: 37 Year
  Sex: Male

DRUGS (5)
  1. AUBAGIO [Suspect]
     Active Substance: TERIFLUNOMIDE
     Indication: PROGRESSIVE MULTIPLE SCLEROSIS
     Route: 065
  2. LANSOPRAZOLE. [Concomitant]
     Active Substance: LANSOPRAZOLE
     Dosage: 7 CAPSULE
  3. CLEXANE [Concomitant]
     Active Substance: ENOXAPARIN SODIUM
     Dosage: ^4000 I.U. AXA / 0.4 ML SOLUTION FOR INJECTION ^6 SYRINGES
  4. AUBAGIO [Suspect]
     Active Substance: TERIFLUNOMIDE
     Indication: DEMYELINATION
     Route: 065
  5. FOLIFILL [Concomitant]

REACTIONS (1)
  - Angioedema [Recovered/Resolved]

NARRATIVE: CASE EVENT DATE: 20150507
